FAERS Safety Report 16291481 (Version 1)
Quarter: 2019Q2

REPORT INFORMATION
  Report Type: Spontaneous
  Country: US (occurrence: US)
  Receive Date: 20190509
  Receipt Date: 20190509
  Transmission Date: 20190711
  Serious: Yes (Hospitalization, Other)
  Sender: FDA-Public Use
  Company Number: US-BAYER-2019-091864

PATIENT
  Age: 75 Year
  Sex: Female

DRUGS (1)
  1. ACETYLSALICYLIC ACID (CARDIO) [Suspect]
     Active Substance: ASPIRIN

REACTIONS (5)
  - Iron deficiency anaemia [Recovering/Resolving]
  - Small intestinal haemorrhage [None]
  - Large intestinal ulcer [None]
  - Lymphangioma [None]
  - Gastritis [None]
